FAERS Safety Report 24133788 (Version 1)
Quarter: 2024Q3

REPORT INFORMATION
  Report Type: Report from Study
  Country: FR (occurrence: FR)
  Receive Date: 20240724
  Receipt Date: 20240724
  Transmission Date: 20241017
  Serious: Yes (Death, Other)
  Sender: DAIICHI
  Company Number: FR-DSJP-DSE-2024-136446

PATIENT
  Sex: Female

DRUGS (2)
  1. ENHERTU [Suspect]
     Active Substance: FAM-TRASTUZUMAB DERUXTECAN-NXKI
     Indication: HER2 low breast cancer
     Dosage: UNK
     Route: 065
  2. ENHERTU [Suspect]
     Active Substance: FAM-TRASTUZUMAB DERUXTECAN-NXKI
     Indication: Breast cancer metastatic
     Dosage: 4.4 MG/KG, CYCLIC
     Route: 065

REACTIONS (8)
  - Disease progression [Fatal]
  - Hepatomegaly [Unknown]
  - Hepatic failure [Not Recovered/Not Resolved]
  - Acute kidney injury [Unknown]
  - Hepatorenal syndrome [Unknown]
  - Altered state of consciousness [Unknown]
  - Malignant ascites [Unknown]
  - Pancytopenia [Recovering/Resolving]

NARRATIVE: CASE EVENT DATE: 20240622
